FAERS Safety Report 4888615-8 (Version None)
Quarter: 2006Q1

REPORT INFORMATION
  Report Type: 
  Country: None (occurrence: None)
  Receive Date: 20060123
  Receipt Date: 20060113
  Transmission Date: 20060701
  Serious: Yes (Hospitalization)
  Sender: FDA-Public Use
  Company Number: DE-ABBOTT-06P-062-0322263-00

PATIENT
  Sex: Female
  Weight: 80 kg

DRUGS (5)
  1. HUMIRA [Suspect]
     Indication: RHEUMATOID ARTHRITIS
     Route: 058
     Dates: start: 20041101, end: 20050201
  2. CYCLOSPORINE [Concomitant]
     Indication: RHEUMATOID ARTHRITIS
  3. COXIB [Concomitant]
     Indication: RHEUMATOID ARTHRITIS
     Route: 048
  4. STEROIDS [Concomitant]
     Indication: RHEUMATOID ARTHRITIS
     Route: 048
  5. STEROIDS [Concomitant]
     Route: 048

REACTIONS (2)
  - DRUG INEFFECTIVE [None]
  - RHEUMATOID LUNG [None]
